FAERS Safety Report 6746535-8 (Version None)
Quarter: 2010Q2

REPORT INFORMATION
  Report Type: 
  Country: None (occurrence: None)
  Receive Date: 20100528
  Receipt Date: 20091217
  Transmission Date: 20101027
  Serious: No
  Sender: FDA-Public Use
  Company Number: US-ASTRAZENECA-2009SE33282

PATIENT

DRUGS (2)
  1. PRILOSEC OTC [Suspect]
     Route: 048
     Dates: start: 20091215, end: 20091217
  2. OMEPRAZOLE [Concomitant]
     Dosage: UNK DOSE, 1 /DAY
     Route: 048

REACTIONS (2)
  - CHEST PAIN [None]
  - CONDITION AGGRAVATED [None]
